FAERS Safety Report 19470410 (Version 1)
Quarter: 2021Q2

REPORT INFORMATION
  Report Type: Spontaneous
  Country: IN (occurrence: IN)
  Receive Date: 20210628
  Receipt Date: 20210628
  Transmission Date: 20210717
  Serious: Yes (Other)
  Sender: FDA-Public Use
  Company Number: IN-PFIZER INC-2020009439

PATIENT
  Age: 54 Year
  Sex: Female

DRUGS (3)
  1. FULVESTRANT. [Concomitant]
     Active Substance: FULVESTRANT
     Dosage: IM 2M
     Route: 030
  2. PALBACE [Suspect]
     Active Substance: PALBOCICLIB
     Indication: BREAST CANCER METASTATIC
     Dosage: 125 MG ONCE DAILY, D1? D21
     Route: 048
     Dates: start: 20191224
  3. ZOLEDRONIC ACID [Concomitant]
     Active Substance: ZOLEDRONIC ACID
     Dosage: 4MG

REACTIONS (6)
  - Mitral valve incompetence [Unknown]
  - Pyrexia [Unknown]
  - Chest discomfort [Unknown]
  - Vomiting [Unknown]
  - Bone pain [Unknown]
  - Neutrophil count decreased [Unknown]
